FAERS Safety Report 4850504-2 (Version None)
Quarter: 2005Q4

REPORT INFORMATION
  Report Type: 
  Country: None (occurrence: None)
  Receive Date: 20051207
  Receipt Date: 20051207
  Transmission Date: 20060501
  Serious: Yes (Disabling)
  Sender: FDA-Public Use
  Company Number: None

PATIENT
  Age: 36 Year
  Sex: Male
  Weight: 108.8633 kg

DRUGS (1)
  1. ALDARA [Suspect]
     Indication: CONDYLOMA ACUMINATUM
     Dosage: 1 PACKET OR LESS 3 TIMES /WEEK TOPICALLY
     Route: 061
     Dates: start: 20050201

REACTIONS (11)
  - ACNE [None]
  - ACTINIC KERATOSIS [None]
  - APHTHOUS STOMATITIS [None]
  - CONDITION AGGRAVATED [None]
  - ERYTHEMA [None]
  - INAPPROPRIATE SCHEDULE OF DRUG ADMINISTRATION [None]
  - NEOPLASM SKIN [None]
  - PRURITUS [None]
  - REFUSAL OF TREATMENT BY PATIENT [None]
  - RHINALGIA [None]
  - SKIN EXFOLIATION [None]
